FAERS Safety Report 10094823 (Version 1)
Quarter: 2014Q2

REPORT INFORMATION
  Report Type: Spontaneous
  Country: US (occurrence: US)
  Receive Date: 20140422
  Receipt Date: 20140422
  Transmission Date: 20141212
  Serious: No
  Sender: FDA-Public Use
  Company Number: US-PFIZER INC-2014109338

PATIENT
  Age: 85 Year
  Sex: Female
  Weight: 89.34 kg

DRUGS (4)
  1. LIPITOR [Suspect]
     Indication: BLOOD CHOLESTEROL INCREASED
     Dosage: 10 MG, DAILY
     Dates: start: 1996
  2. CELEBREX [Suspect]
     Indication: ARTHRITIS
     Dosage: 200 MG, DAILY
     Dates: start: 1996
  3. SYNTHROID [Concomitant]
     Indication: THYROID DISORDER
     Dosage: 0.112 MG, UNK
  4. COUMADIN [Concomitant]
     Indication: CARDIOVASCULAR DISORDER
     Dosage: 5 MG, DAILY

REACTIONS (2)
  - Lip disorder [Unknown]
  - Hearing impaired [Unknown]
